FAERS Safety Report 18792278 (Version 9)
Quarter: 2021Q3

REPORT INFORMATION
  Report Type: Other
  Country: IT (occurrence: IT)
  Receive Date: 20210127
  Receipt Date: 20210715
  Transmission Date: 20211014
  Serious: Yes (Death, Hospitalization, Other)
  Sender: FDA-Public Use
  Company Number: IT-ROCHE-2752747

PATIENT
  Age: 52 Year
  Sex: Female
  Weight: 61 kg

DRUGS (12)
  1. ATEZOLIZUMAB. [Suspect]
     Active Substance: ATEZOLIZUMAB
     Route: 041
     Dates: start: 20210210
  2. ETOPOSIDE. [Suspect]
     Active Substance: ETOPOSIDE
     Indication: SMALL CELL LUNG CANCER EXTENSIVE STAGE
     Route: 065
     Dates: start: 20201029
  3. ONDASETRON [Concomitant]
     Active Substance: ONDANSETRON
     Dates: start: 20210216
  4. ARIXTRA [Concomitant]
     Active Substance: FONDAPARINUX SODIUM
     Dates: start: 20210326
  5. ZOFRAN [Concomitant]
     Active Substance: ONDANSETRON HYDROCHLORIDE
     Dates: start: 20210216
  6. PARACODINA [DIHYDROCODEINE] [Concomitant]
     Active Substance: DIHYDROCODEINE
     Dates: start: 20210216
  7. ATEZOLIZUMAB. [Suspect]
     Active Substance: ATEZOLIZUMAB
     Indication: SMALL CELL LUNG CANCER EXTENSIVE STAGE
     Dosage: ON 20/NOV/2020 AND 10/DEC/2020, RECEIVED SUBSEQUENT DOSE OF ATEZOLIZUMAB.?MOST RECENT DOSE OF ATEZOL
     Route: 041
     Dates: start: 20201029
  8. CARBOPLATIN. [Suspect]
     Active Substance: CARBOPLATIN
     Indication: SMALL CELL LUNG CANCER EXTENSIVE STAGE
     Route: 065
     Dates: start: 20201029
  9. MEDROL [Concomitant]
     Active Substance: METHYLPREDNISOLONE
     Dates: start: 20210202
  10. LIMICAN [Concomitant]
     Active Substance: ALIZAPRIDE HYDROCHLORIDE
     Dates: start: 20200216, end: 20210216
  11. LEVOFLOXACINA [Concomitant]
     Active Substance: LEVOFLOXACIN
     Dates: start: 20210216, end: 20210224
  12. ZARZIO [Concomitant]
     Active Substance: FILGRASTIM
     Dates: start: 20201214, end: 20210111

REACTIONS (19)
  - Hyperbilirubinaemia [Not Recovered/Not Resolved]
  - Cough [Recovering/Resolving]
  - Abdominal pain [Recovered/Resolved]
  - Hypokalaemia [Recovered/Resolved]
  - Asthenia [Not Recovered/Not Resolved]
  - Nausea [Recovering/Resolving]
  - Pyrexia [Recovered/Resolved]
  - Abdominal pain upper [Recovered/Resolved]
  - Rash [Recovered/Resolved]
  - Headache [Recovered/Resolved]
  - Anaemia [Recovered/Resolved]
  - Hypoxia [Recovered/Resolved]
  - Vomiting [Recovered/Resolved]
  - Hypocalcaemia [Recovered/Resolved]
  - Dyspnoea [Recovered/Resolved]
  - Myalgia [Recovered/Resolved]
  - Tachycardia [Not Recovered/Not Resolved]
  - Vomiting [Recovered/Resolved]
  - Hypertransaminasaemia [Not Recovered/Not Resolved]

NARRATIVE: CASE EVENT DATE: 20201119
